FAERS Safety Report 4989975-X (Version None)
Quarter: 2006Q2

REPORT INFORMATION
  Report Type: 
  Country: None (occurrence: None)
  Receive Date: 20060503
  Receipt Date: 20060424
  Transmission Date: 20061013
  Serious: Yes (Hospitalization)
  Sender: FDA-Public Use
  Company Number: US-JNJFOC-20060405897

PATIENT
  Sex: Female
  Weight: 74.39 kg

DRUGS (2)
  1. FENTANYL TRANSDERMAL SYSTEM [Suspect]
     Dosage: INITIATED END OF MAR-2006.
     Route: 062
  2. GEMZAR [Concomitant]
     Indication: BREAST CANCER
     Route: 042

REACTIONS (3)
  - ANAEMIA [None]
  - INFECTION [None]
  - LEUKOCYTOSIS [None]
